FAERS Safety Report 25372716 (Version 1)
Quarter: 2025Q2

REPORT INFORMATION
  Report Type: Spontaneous
  Country: US (occurrence: US)
  Receive Date: 20250529
  Receipt Date: 20250529
  Transmission Date: 20250716
  Serious: No
  Sender: MACLEODS
  Company Number: US-MACLEODS PHARMA-MAC2025053229

PATIENT

DRUGS (1)
  1. IBANDRONATE SODIUM [Suspect]
     Active Substance: IBANDRONATE SODIUM
     Indication: Product used for unknown indication
     Route: 065
     Dates: start: 202501

REACTIONS (5)
  - Pain [Unknown]
  - Impaired work ability [Unknown]
  - Gait disturbance [Unknown]
  - Sciatica [Unknown]
  - Dysstasia [Unknown]
